FAERS Safety Report 5988177-8 (Version None)
Quarter: 2008Q4

REPORT INFORMATION
  Report Type: 
  Country: None (occurrence: None)
  Receive Date: 20081210
  Receipt Date: 20081202
  Transmission Date: 20090506
  Serious: Yes (Hospitalization)
  Sender: FDA-Public Use
  Company Number: PT-RANBAXY-2008RR-19687

PATIENT
  Age: 18 Year
  Sex: Female

DRUGS (1)
  1. CLARITHROMYCIN [Suspect]

REACTIONS (1)
  - MANIA [None]
